FAERS Safety Report 9771318 (Version 1)
Quarter: 2013Q4

REPORT INFORMATION
  Report Type: Spontaneous
  Country: IN (occurrence: IN)
  Receive Date: 20131218
  Receipt Date: 20131218
  Transmission Date: 20140711
  Serious: Yes (Other)
  Sender: FDA-Public Use
  Company Number: IN-MYLANLABS-2013S1027525

PATIENT
  Age: 14 Year
  Sex: Female

DRUGS (9)
  1. ATROPINE [Suspect]
     Indication: TOXICITY TO VARIOUS AGENTS
     Dosage: 5 MG/HR
     Route: 042
  2. MORPHINE [Suspect]
     Indication: SEDATIVE THERAPY
     Dosage: 2 MG/HR
     Route: 042
  3. PROMETHAZINE [Suspect]
     Indication: SEDATIVE THERAPY
     Route: 042
  4. HALOPERIDOL [Suspect]
     Indication: SEDATIVE THERAPY
     Dosage: 2-10MG AS REQUIRED
     Route: 042
  5. PROPOFOL [Suspect]
     Indication: SEDATIVE THERAPY
     Route: 041
  6. PRALIDOXIME CHLORIDE [Concomitant]
     Indication: TOXICITY TO VARIOUS AGENTS
     Route: 042
  7. MIDAZOLAM [Concomitant]
     Indication: SEDATIVE THERAPY
     Dosage: 2 MG/HR
     Route: 042
  8. DIAZEPAM [Concomitant]
     Indication: SEDATIVE THERAPY
     Route: 042
  9. DEXMEDETOMIDINE [Concomitant]
     Indication: SEDATIVE THERAPY
     Route: 065

REACTIONS (2)
  - Mental disorder due to a general medical condition [Recovered/Resolved]
  - Extrapyramidal disorder [Recovered/Resolved]
